FAERS Safety Report 12340920 (Version 2)
Quarter: 2016Q3

REPORT INFORMATION
  Report Type: Spontaneous
  Country: US (occurrence: US)
  Receive Date: 20160506
  Receipt Date: 20160805
  Transmission Date: 20161109
  Serious: No
  Sender: FDA-Public Use
  Company Number: US-PFIZER INC-2016241023

PATIENT
  Age: 58 Year
  Sex: Female

DRUGS (5)
  1. MILK THISTLE [Concomitant]
     Active Substance: MILK THISTLE
     Dosage: UNK
  2. LETROZOLE. [Concomitant]
     Active Substance: LETROZOLE
     Dosage: UNK
  3. CALCIUM [Concomitant]
     Active Substance: CALCIUM
     Dosage: UNK
  4. IBRANCE [Suspect]
     Active Substance: PALBOCICLIB
     Indication: BREAST CANCER FEMALE
     Dosage: 100 MG, ONE CAPSULE EVERY DAY FOR 21 DAYS, THEN 7 DAYS OFF
     Route: 048
  5. TYLENOL [Concomitant]
     Active Substance: ACETAMINOPHEN
     Dosage: UNK

REACTIONS (7)
  - Diarrhoea [Unknown]
  - Fatigue [Unknown]
  - Ear infection [Unknown]
  - Crying [Unknown]
  - Urine odour abnormal [Unknown]
  - Dyspnoea [Unknown]
  - Abnormal faeces [Unknown]
